FAERS Safety Report 17618652 (Version 2)
Quarter: 2020Q2

REPORT INFORMATION
  Report Type: Report from Study
  Country: US (occurrence: US)
  Receive Date: 20200402
  Receipt Date: 20200506
  Transmission Date: 20200713
  Serious: Yes (Other)
  Sender: FDA-Public Use
  Company Number: NVSC2020US087557

PATIENT
  Sex: Male

DRUGS (1)
  1. ILARIS [Suspect]
     Active Substance: CANAKINUMAB
     Indication: CRYOPYRIN ASSOCIATED PERIODIC SYNDROME
     Dosage: 150 MG, Q2MO
     Route: 058

REACTIONS (4)
  - Swelling [Unknown]
  - Condition aggravated [Unknown]
  - Arthralgia [Unknown]
  - Cryopyrin associated periodic syndrome [Unknown]
